FAERS Safety Report 13100174 (Version 2)
Quarter: 2017Q1

REPORT INFORMATION
  Report Type: Report from Study
  Country: US (occurrence: US)
  Receive Date: 20170110
  Receipt Date: 20170125
  Transmission Date: 20170428
  Serious: Yes (Hospitalization, Other)
  Sender: FDA-Public Use
  Company Number: US-ASTRAZENECA-2014SE54029

PATIENT
  Age: 21785 Day
  Sex: Female
  Weight: 72.6 kg

DRUGS (11)
  1. CLAVIX [Concomitant]
  2. NEXIUM [Concomitant]
     Active Substance: ESOMEPRAZOLE MAGNESIUM
  3. CRESTOR [Concomitant]
     Active Substance: ROSUVASTATIN CALCIUM
  4. METFORMIN HCL [Concomitant]
     Active Substance: METFORMIN HYDROCHLORIDE
  5. BYETTA [Suspect]
     Active Substance: EXENATIDE
     Indication: TYPE 2 DIABETES MELLITUS
     Dosage: 250 MCG/ML  2.4ML  0.04ML, 10 UG BID
     Route: 058
  6. BYDUREON [Suspect]
     Active Substance: EXENATIDE
     Indication: TYPE 2 DIABETES MELLITUS
     Route: 058
     Dates: start: 201405
  7. BYDUREON [Suspect]
     Active Substance: EXENATIDE
     Indication: TYPE 2 DIABETES MELLITUS
     Route: 058
     Dates: start: 20150112
  8. PLAVIX [Concomitant]
     Active Substance: CLOPIDOGREL BISULFATE
  9. LANTUS [Concomitant]
     Active Substance: INSULIN GLARGINE
  10. SPIRONOLACTONE. [Concomitant]
     Active Substance: SPIRONOLACTONE
  11. JANUVIA [Concomitant]
     Active Substance: SITAGLIPTIN PHOSPHATE
     Indication: BLOOD GLUCOSE ABNORMAL
     Dosage: 100 MG
     Dates: start: 20161228

REACTIONS (17)
  - Blood pressure increased [Unknown]
  - Somnolence [Unknown]
  - Asthenia [Unknown]
  - Blood glucose fluctuation [Unknown]
  - Eye haemorrhage [Unknown]
  - Cerebral haemorrhage [Unknown]
  - Weight decreased [Unknown]
  - Memory impairment [Unknown]
  - Tremor [Unknown]
  - Urinary tract infection [Unknown]
  - Nausea [Unknown]
  - Malaise [Recovered/Resolved]
  - Dizziness [Unknown]
  - Cerebrovascular accident [Unknown]
  - Headache [Recovered/Resolved]
  - Dehydration [Unknown]
  - Vomiting [Unknown]

NARRATIVE: CASE EVENT DATE: 20130403
